FAERS Safety Report 6207760-8 (Version None)
Quarter: 2009Q2

REPORT INFORMATION
  Report Type: 
  Country: None (occurrence: None)
  Receive Date: 20090528
  Receipt Date: 20090521
  Transmission Date: 20091009
  Serious: Yes (Other)
  Sender: FDA-Public Use
  Company Number: US-AMGEN-QUU333266

PATIENT
  Sex: Male
  Weight: 9.1 kg

DRUGS (2)
  1. ENBREL [Suspect]
     Indication: PSORIASIS
     Route: 064
     Dates: start: 20040121
  2. ENBREL [Suspect]
     Indication: PSORIATIC ARTHROPATHY

REACTIONS (3)
  - BRONCHIAL HYPERREACTIVITY [None]
  - GASTROOESOPHAGEAL REFLUX DISEASE [None]
  - PREMATURE BABY [None]
